FAERS Safety Report 4413072-5 (Version None)
Quarter: 2004Q3

REPORT INFORMATION
  Report Type: 
  Country: None (occurrence: None)
  Receive Date: 20040802
  Receipt Date: 20040802
  Transmission Date: 20050211
  Serious: Yes (Other)
  Sender: FDA-Public Use
  Company Number: None

PATIENT
  Age: 54 Year
  Sex: Female
  Weight: 86.1834 kg

DRUGS (4)
  1. ACETAMINOPHEN W/ PROPOXYPHENE HCL [Suspect]
     Indication: INTERVERTEBRAL DISC PROTRUSION
     Dosage: 1 EVERY 4 HR
     Dates: start: 20030215, end: 20040726
  2. ACETAMINOPHEN W/ PROPOXYPHENE HCL [Suspect]
     Indication: NECK PAIN
     Dosage: 1 EVERY 4 HR
     Dates: start: 20030215, end: 20040726
  3. ETODOLAC [Suspect]
     Indication: INTERVERTEBRAL DISC PROTRUSION
     Dosage: 1 2 TIMES
     Dates: start: 20030215, end: 20040816
  4. ETODOLAC [Suspect]
     Indication: NECK PAIN
     Dosage: 1 2 TIMES
     Dates: start: 20030215, end: 20040816

REACTIONS (2)
  - CHOLEDOCHAL CYST [None]
  - CHOLELITHIASIS [None]
